FAERS Safety Report 8168082-1 (Version None)
Quarter: 2012Q1

REPORT INFORMATION
  Report Type: 
  Country: None (occurrence: None)
  Receive Date: 20120227
  Receipt Date: 20120215
  Transmission Date: 20120608
  Serious: Yes (Hospitalization)
  Sender: FDA-Public Use
  Company Number: PHFR2011GB006989

PATIENT
  Sex: Male

DRUGS (4)
  1. FLUOXETINE HCL [Concomitant]
     Dosage: 60 MG, UNK
     Route: 048
  2. CLONAZEPAM [Concomitant]
     Dosage: 500 UG, BID
     Route: 048
  3. CLOZARIL [Suspect]
     Indication: SCHIZOPHRENIA
     Dosage: 100 MG, BID
     Route: 048
     Dates: start: 19981217
  4. SIMVASTATIN [Concomitant]
     Dosage: 40 MG, UNK
     Route: 048

REACTIONS (5)
  - ANTIPSYCHOTIC DRUG LEVEL BELOW THERAPEUTIC [None]
  - BLOOD CREATININE INCREASED [None]
  - CONFUSIONAL STATE [None]
  - AGITATION [None]
  - HYPOPHAGIA [None]
